FAERS Safety Report 10044311 (Version 2)
Quarter: 2014Q2

REPORT INFORMATION
  Report Type: Spontaneous
  Country: US (occurrence: US)
  Receive Date: 20140328
  Receipt Date: 20140409
  Transmission Date: 20141212
  Serious: Yes (Other)
  Sender: FDA-Public Use
  Company Number: US-JNJFOC-20140315513

PATIENT
  Age: 67 Year
  Sex: Male

DRUGS (4)
  1. TRAMADOL [Suspect]
     Indication: BACK PAIN
     Route: 048
     Dates: start: 20140318
  2. CITALOPRAM [Concomitant]
     Indication: PRODUCT USED FOR UNKNOWN INDICATION
     Route: 048
     Dates: start: 20131025
  3. POTASSIUM CHLORIDE [Concomitant]
     Indication: PRODUCT USED FOR UNKNOWN INDICATION
     Route: 048
     Dates: start: 20131014
  4. TOPAMAX [Concomitant]
     Route: 048

REACTIONS (1)
  - Intervertebral disc displacement [Unknown]
